FAERS Safety Report 6379869-X (Version None)
Quarter: 2009Q3

REPORT INFORMATION
  Report Type: 
  Country: None (occurrence: None)
  Receive Date: 20090928
  Receipt Date: 20090917
  Transmission Date: 20100115
  Serious: Yes (Hospitalization, Other)
  Sender: FDA-Public Use
  Company Number: PHMT2007CA00555

PATIENT
  Sex: Male

DRUGS (4)
  1. SANDOSTATIN LAR [Suspect]
     Indication: NEUROENDOCRINE CARCINOMA
     Dosage: 30 MG, ONCE A MONTH
     Dates: start: 20060526
  2. SANDOSTATIN LAR [Suspect]
     Dosage: 20 MG
     Dates: end: 20070514
  3. SANDOSTATIN LAR [Suspect]
     Dosage: DOSE INCREASED
  4. SANDOSTATIN LAR [Suspect]
     Dosage: 40 MG ONCE A MONTH
     Route: 030
     Dates: start: 20060526

REACTIONS (12)
  - ABDOMINAL PAIN [None]
  - CHOLECYSTECTOMY [None]
  - CHOLELITHIASIS [None]
  - DIARRHOEA [None]
  - FATIGUE [None]
  - HEPATIC NEOPLASM MALIGNANT RESECTABLE [None]
  - HIGH FREQUENCY ABLATION [None]
  - ISCHAEMIA [None]
  - MALAISE [None]
  - NASOPHARYNGITIS [None]
  - RHINITIS [None]
  - TUMOUR EXCISION [None]
